FAERS Safety Report 23405689 (Version 1)
Quarter: 2024Q1

REPORT INFORMATION
  Report Type: Spontaneous
  Country: FR (occurrence: FR)
  Receive Date: 20240116
  Receipt Date: 20240116
  Transmission Date: 20240410
  Serious: Yes (Other)
  Sender: FDA-Public Use
  Company Number: FR-BAYER-2024A006267

PATIENT
  Weight: 3 kg

DRUGS (1)
  1. ULTRAVIST [Suspect]
     Active Substance: IOPROMIDE
     Indication: Abdominal pain
     Dosage: 70 ML, ONCE
     Route: 042
     Dates: start: 20230915, end: 20230915

REACTIONS (2)
  - Neonatal respiratory distress syndrome [None]
  - Foetal exposure during pregnancy [None]
